FAERS Safety Report 12093071 (Version 3)
Quarter: 2016Q1

REPORT INFORMATION
  Report Type: Spontaneous
  Country: US (occurrence: US)
  Receive Date: 20160219
  Receipt Date: 20160330
  Transmission Date: 20160526
  Serious: Yes (Other)
  Sender: FDA-Public Use
  Company Number: US-PFIZER INC-2016100253

PATIENT
  Age: 34 Year
  Sex: Male
  Weight: 91 kg

DRUGS (12)
  1. NEXIUM [Concomitant]
     Active Substance: ESOMEPRAZOLE MAGNESIUM
     Indication: ABDOMINAL DISCOMFORT
     Dosage: TOOK ONE OF IT
  2. VITAMIN D [Concomitant]
     Active Substance: CHOLECALCIFEROL
     Dosage: UNK
  3. PROZAC [Concomitant]
     Active Substance: FLUOXETINE HYDROCHLORIDE
     Dosage: 200 MG, UNK
  4. GABAPENTIN. [Suspect]
     Active Substance: GABAPENTIN
     Indication: PAIN
  5. LISINOPRIL. [Concomitant]
     Active Substance: LISINOPRIL
     Dosage: 10/12, ^TAKES ONE OF IT^
  6. GABAPENTIN. [Suspect]
     Active Substance: GABAPENTIN
     Indication: NERVE INJURY
     Dosage: 900 MG, DAILY (3 CAPSULES A DAY, UNKNOWN MG DOSE WANTS TO SAY 300MG)
     Dates: start: 2007, end: 201601
  7. GABAPENTIN. [Suspect]
     Active Substance: GABAPENTIN
     Indication: DRUG DEPENDENCE
  8. GABAPENTIN. [Suspect]
     Active Substance: GABAPENTIN
     Indication: BACK PAIN
     Dosage: 300 MG, 4X/DAY
     Dates: start: 2008
  9. IBUPROFEN. [Concomitant]
     Active Substance: IBUPROFEN
     Dosage: UNK
  10. VENLAFAXINE [Concomitant]
     Active Substance: VENLAFAXINE HYDROCHLORIDE
     Dosage: 150 MG, 1X/DAY, AT NIGHT
  11. RISPERIDONE. [Concomitant]
     Active Substance: RISPERIDONE
     Dosage: UNK
  12. LITHIUM. [Concomitant]
     Active Substance: LITHIUM
     Indication: BIPOLAR DISORDER
     Dosage: 300MG PILLS 2 IN THE MORNING AND 2 AT NIGHT
     Dates: start: 2008, end: 2014

REACTIONS (22)
  - Anger [Unknown]
  - Dysgraphia [Unknown]
  - Mental disorder [Unknown]
  - Arthralgia [Unknown]
  - Functional gastrointestinal disorder [Unknown]
  - Back injury [Unknown]
  - Impaired work ability [Unknown]
  - Feeling abnormal [Recovering/Resolving]
  - Bipolar disorder [Not Recovered/Not Resolved]
  - Movement disorder [Unknown]
  - Memory impairment [Recovering/Resolving]
  - Muscle disorder [Unknown]
  - Mobility decreased [Unknown]
  - Reading disorder [Unknown]
  - Drug ineffective for unapproved indication [Unknown]
  - Speech disorder [Unknown]
  - Mood swings [Unknown]
  - Tremor [Unknown]
  - Fibromyalgia [Unknown]
  - Intentional product use issue [Unknown]
  - Pain [Unknown]
  - Bladder dysfunction [Unknown]

NARRATIVE: CASE EVENT DATE: 2007
